FAERS Safety Report 4599999-2 (Version None)
Quarter: 2005Q1

REPORT INFORMATION
  Report Type: 
  Country: None (occurrence: None)
  Receive Date: 20050303
  Receipt Date: 20050222
  Transmission Date: 20050727
  Serious: Yes (Hospitalization, Other)
  Sender: FDA-Public Use
  Company Number: GBWYE454624FEB05

PATIENT
  Age: 33 Year
  Sex: Male

DRUGS (1)
  1. EFFEXOR [Suspect]
     Indication: DEPRESSION
     Dosage: 225 MG, ORAL
     Route: 048
     Dates: start: 20040504

REACTIONS (4)
  - DYSTONIA [None]
  - HYPOAESTHESIA [None]
  - MUSCLE TIGHTNESS [None]
  - TETANY [None]
